FAERS Safety Report 6054440-8 (Version None)
Quarter: 2009Q1

REPORT INFORMATION
  Report Type: 
  Country: None (occurrence: None)
  Receive Date: 20090127
  Receipt Date: 20090122
  Transmission Date: 20090719
  Serious: Yes (Life-Threatening, Disabling)
  Sender: FDA-Public Use
  Company Number: DE-B.I. PHARMACEUTICALS,INC./RIDGEFIELD-2009-DE-00828DE

PATIENT
  Sex: Male
  Weight: 83 kg

DRUGS (4)
  1. AGGRENOX [Suspect]
     Indication: CEREBRAL INFARCTION
     Dosage: 2ANZ
     Route: 048
     Dates: start: 20080825, end: 20080901
  2. PANTOZOL [Concomitant]
  3. SIMVASTATIN 40 [Concomitant]
  4. TEVETEN [Concomitant]

REACTIONS (1)
  - CEREBRAL INFARCTION [None]
